FAERS Safety Report 20776415 (Version 1)
Quarter: 2022Q2

REPORT INFORMATION
  Report Type: Spontaneous
  Country: HU (occurrence: HU)
  Receive Date: 20220502
  Receipt Date: 20220502
  Transmission Date: 20220721
  Serious: Yes (Other)
  Sender: FDA-Public Use
  Company Number: HU-TAKEDA-2022TEU002755

PATIENT
  Age: 72 Year
  Sex: Male

DRUGS (8)
  1. PANTOPRAZOLE [Suspect]
     Active Substance: PANTOPRAZOLE
     Dosage: 40 MG
     Route: 048
  2. BISOPROLOL [Suspect]
     Active Substance: BISOPROLOL
     Dosage: 7.5 MG
     Route: 048
  3. ENTRESTO [Suspect]
     Active Substance: SACUBITRIL\VALSARTAN
     Dosage: 100 MG
     Route: 048
     Dates: start: 201907, end: 202106
  4. ALLOPURINOL [Concomitant]
     Active Substance: ALLOPURINOL
     Dosage: 100 MG
     Route: 048
  5. FUROSEMIDE [Concomitant]
     Active Substance: FUROSEMIDE
     Dosage: 40 MG
     Route: 048
  6. IVABRADINE [Concomitant]
     Active Substance: IVABRADINE
     Dosage: 10 MG
     Route: 048
  7. ASPIRIN [Concomitant]
     Active Substance: ASPIRIN
     Dosage: 100 MG
     Route: 048
  8. SPIRONOLACTONE [Concomitant]
     Active Substance: SPIRONOLACTONE
     Dosage: 25 MG
     Route: 048

REACTIONS (2)
  - Renal failure [Unknown]
  - Prostate cancer [Unknown]
